FAERS Safety Report 6389868-X (Version None)
Quarter: 2009Q4

REPORT INFORMATION
  Report Type: 
  Country: None (occurrence: None)
  Receive Date: 20091006
  Receipt Date: 20081217
  Transmission Date: 20100525
  Serious: No
  Sender: FDA-Public Use
  Company Number: US-BRISTOL-MYERS SQUIBB COMPANY-14446959

PATIENT
  Age: 68 Year
  Sex: Male
  Weight: 100 kg

DRUGS (8)
  1. AVAPRO [Suspect]
     Indication: CARDIAC DISORDER
  2. CARVEDILOL [Concomitant]
  3. LASIX [Concomitant]
  4. COREG [Concomitant]
  5. ALBUTEROL [Concomitant]
  6. COLCHICINE [Concomitant]
  7. WARFARIN [Concomitant]
  8. TRAVATAN [Concomitant]
     Dosage: EYE DROPS

REACTIONS (1)
  - DYSGEUSIA [None]
